FAERS Safety Report 17902677 (Version 1)
Quarter: 2020Q2

REPORT INFORMATION
  Report Type: Spontaneous
  Country: ES (occurrence: ES)
  Receive Date: 20200617
  Receipt Date: 20200617
  Transmission Date: 20200714
  Serious: Yes (Other)
  Sender: FDA-Public Use
  Company Number: ES-ALEXION PHARMACEUTICALS INC.-A202008381

PATIENT
  Age: 53 Year
  Sex: Female

DRUGS (1)
  1. SOLIRIS [Suspect]
     Active Substance: ECULIZUMAB
     Indication: ATYPICAL HAEMOLYTIC URAEMIC SYNDROME
     Route: 065

REACTIONS (12)
  - Hepatitis C [Unknown]
  - Fatigue [Unknown]
  - Thrombocytopenia [Unknown]
  - Gastrointestinal disorder [Unknown]
  - Blood creatinine increased [Unknown]
  - Atrial tachycardia [Unknown]
  - Renal impairment [Recovered/Resolved]
  - Glomerular vascular disorder [Unknown]
  - Rash maculo-papular [Unknown]
  - Blood lactate dehydrogenase increased [Unknown]
  - Syncope [Unknown]
  - Anaemia [Unknown]
